FAERS Safety Report 4650180-8 (Version None)
Quarter: 2005Q2

REPORT INFORMATION
  Report Type: 
  Country: None (occurrence: None)
  Receive Date: 20050428
  Receipt Date: 20050415
  Transmission Date: 20051028
  Serious: Yes (Other)
  Sender: FDA-Public Use
  Company Number: 2005057314

PATIENT
  Age: 53 Year
  Sex: Male

DRUGS (2)
  1. BEXTRA [Suspect]
     Indication: ILL-DEFINED DISORDER
     Dosage: ORAL
     Route: 048
     Dates: start: 20040101
  2. BEXTRA (PARACOXIB) [Suspect]
     Indication: PHARYNGITIS
     Dosage: (40 MG),
     Dates: start: 20040101

REACTIONS (2)
  - ERYTHEMA [None]
  - FEELING ABNORMAL [None]
